FAERS Safety Report 10009384 (Version 2)
Quarter: 2014Q1

REPORT INFORMATION
  Report Type: Spontaneous
  Country: US (occurrence: US)
  Receive Date: 20140313
  Receipt Date: 20140313
  Transmission Date: 20141002
  Serious: Yes (Other)
  Sender: FDA-Public Use
  Company Number: US-INCYTE CORPORATION-2012IN001463

PATIENT
  Age: 64 Year
  Sex: Female
  Weight: 74.92 kg

DRUGS (16)
  1. JAKAFI [Suspect]
     Indication: MYELOFIBROSIS
     Dosage: 10 MG, BID
     Route: 048
     Dates: start: 20120618
  2. BUPROPION [Concomitant]
  3. DIAZEPAM [Concomitant]
  4. PROPRANOLOL [Concomitant]
  5. METOLAZONE [Concomitant]
  6. BUMETANIDE [Concomitant]
  7. SIMVASTATIN [Concomitant]
  8. MECLIZINE [Concomitant]
  9. AMILORIDE [Concomitant]
  10. ASPIRIN [Concomitant]
     Dosage: 81 MG, UNK
  11. COUMADIN [Concomitant]
  12. XANAX [Concomitant]
  13. NITROSTAT [Concomitant]
  14. ALDACTONE [Concomitant]
  15. OSTEO BI-FLEX [Concomitant]
  16. POTASSIUM [Concomitant]

REACTIONS (3)
  - Haemoglobin decreased [Unknown]
  - Fatigue [Not Recovered/Not Resolved]
  - Drug ineffective [Unknown]
